FAERS Safety Report 24114601 (Version 1)
Quarter: 2024Q3

REPORT INFORMATION
  Report Type: Other
  Country: US (occurrence: US)
  Receive Date: 20240720
  Receipt Date: 20240720
  Transmission Date: 20241017
  Serious: Yes (Hospitalization, Other)
  Sender: UROVANT SCIENCES
  Company Number: US-UROVANT SCIENCES GMBH-202407-URV-001064

PATIENT
  Sex: Male

DRUGS (2)
  1. GEMTESA [Suspect]
     Active Substance: VIBEGRON
     Indication: Hypertonic bladder
     Dosage: 75 MILLIGRAM, QD
     Route: 065
  2. LOTREL                             /01388302/ [Concomitant]
     Indication: Product used for unknown indication
     Dosage: UNK, 10/40
     Route: 065

REACTIONS (3)
  - Dyspnoea [Unknown]
  - Neoplasm malignant [Unknown]
  - Cough [Unknown]
